FAERS Safety Report 20310844 (Version 1)
Quarter: 2022Q1

REPORT INFORMATION
  Report Type: Spontaneous
  Country: US (occurrence: US)
  Receive Date: 20220107
  Receipt Date: 20220107
  Transmission Date: 20220423
  Serious: No
  Sender: FDA-Public Use
  Company Number: US-BoehringerIngelheim-2022-BI-147244

PATIENT
  Age: 78 Year
  Sex: Male

DRUGS (1)
  1. JARDIANCE [Suspect]
     Active Substance: EMPAGLIFLOZIN
     Indication: Drug therapy
     Dosage: 1 TABLET DAILY
     Dates: start: 202112

REACTIONS (3)
  - Weight decreased [Unknown]
  - Dizziness [Unknown]
  - Muscular weakness [Unknown]
